FAERS Safety Report 5042076-7 (Version None)
Quarter: 2006Q2

REPORT INFORMATION
  Report Type: 
  Country: None (occurrence: None)
  Receive Date: 20060630
  Receipt Date: 20060628
  Transmission Date: 20061013
  Serious: Yes (Hospitalization)
  Sender: FDA-Public Use
  Company Number: S06-SWI-02005-01

PATIENT
  Age: 76 Year
  Sex: Female

DRUGS (7)
  1. CITALOPRAM HYDROBROMIDE [Suspect]
     Dosage: 20 MG QD PO
     Route: 048
     Dates: end: 20060222
  2. MORPHINE [Suspect]
     Indication: PAIN
     Dosage: 16 MG QD SC
     Route: 058
     Dates: start: 20060220, end: 20060221
  3. TRAMADOL HCL [Suspect]
     Indication: PAIN
     Dosage: 400 MG QD PO
     Route: 048
     Dates: start: 20060220, end: 20060222
  4. LEVOTHYROXINE SODIUM [Concomitant]
  5. CIBACEN (BENAZEPRIL HYDROCHLORIDE) [Concomitant]
  6. ZOLPIDEM TARTRATE [Concomitant]
  7. HEPARIN [Concomitant]

REACTIONS (14)
  - ANURIA [None]
  - BLOOD CREATININE INCREASED [None]
  - BLOOD UREA INCREASED [None]
  - DELIRIUM [None]
  - DEPRESSED LEVEL OF CONSCIOUSNESS [None]
  - FLIGHT OF IDEAS [None]
  - GENERAL PHYSICAL HEALTH DETERIORATION [None]
  - HOFFMANN'S SIGN [None]
  - METABOLIC ACIDOSIS [None]
  - PAIN IN EXTREMITY [None]
  - RENAL IMPAIRMENT [None]
  - RHABDOMYOLYSIS [None]
  - SEROTONIN SYNDROME [None]
  - TOE AMPUTATION [None]
